FAERS Safety Report 6821621-2 (Version None)
Quarter: 2010Q3

REPORT INFORMATION
  Report Type: 
  Country: None (occurrence: None)
  Receive Date: 20100707
  Receipt Date: 20090420
  Transmission Date: 20110219
  Serious: Yes (Other)
  Sender: FDA-Public Use
  Company Number: US-PFIZER INC-2009203287

PATIENT
  Sex: Male
  Weight: 68.027 kg

DRUGS (3)
  1. ZOLOFT [Suspect]
     Indication: DEPRESSION
     Dates: start: 20090401, end: 20090419
  2. ZOLOFT [Interacting]
     Indication: ANXIETY
  3. MARIJUANA [Interacting]
     Dates: start: 20090419

REACTIONS (5)
  - ANXIETY [None]
  - DRUG INTERACTION [None]
  - EUPHORIC MOOD [None]
  - FEAR [None]
  - PARANOIA [None]
